FAERS Safety Report 5023322-2 (Version None)
Quarter: 2006Q2

REPORT INFORMATION
  Report Type: 
  Country: None (occurrence: None)
  Receive Date: 20060605
  Receipt Date: 20060518
  Transmission Date: 20061013
  Serious: Yes (Death)
  Sender: FDA-Public Use
  Company Number: 2006JP000219

PATIENT
  Age: 34 Year
  Sex: Male

DRUGS (10)
  1. PROGRAF [Suspect]
     Indication: BONE MARROW TRANSPLANT
     Dosage: 0.03 MG/KG/D , IV DRIP
     Route: 041
  2. METHOTREXATE [Concomitant]
  3. LEVOFLOXACIN [Concomitant]
  4. FLUCONAZOLE [Concomitant]
  5. SULFAMETHOXAZOLE + TRIMETHOPRIM [Concomitant]
  6. ACYCLOVIR [Concomitant]
  7. GANCICLOVIR [Concomitant]
  8. METHYLPREDNISOLONE [Concomitant]
  9. CYCLOPHOSPHAMIDE [Concomitant]
  10. MORPHINE [Concomitant]

REACTIONS (3)
  - COMA [None]
  - ENCEPHALITIS [None]
  - HUMAN HERPESVIRUS 6 INFECTION [None]
